FAERS Safety Report 23145870 (Version 2)
Quarter: 2023Q4

REPORT INFORMATION
  Report Type: Spontaneous
  Country: IT (occurrence: None)
  Receive Date: 20231104
  Receipt Date: 20231127
  Transmission Date: 20240110
  Serious: Yes (Life-Threatening)
  Sender: FDA-Public Use
  Company Number: None

PATIENT
  Age: 64 Year
  Sex: Male
  Weight: 73.5 kg

DRUGS (1)
  1. RITUXIMAB [Suspect]
     Active Substance: RITUXIMAB
     Indication: Non-Hodgkin^s lymphoma
     Dosage: RITUXIMAB 375MG/NG EVERY 22 DAYS. INTRAVENOUS FROM 7/6/2023 TO 7/27/2023. NHL THERAPEUTIC INDICATION
     Route: 041
     Dates: start: 20230706, end: 20230727

REACTIONS (1)
  - Loss of consciousness [Recovered/Resolved]

NARRATIVE: CASE EVENT DATE: 20230727
